FAERS Safety Report 20846591 (Version 4)
Quarter: 2023Q2

REPORT INFORMATION
  Report Type: Spontaneous
  Country: IN (occurrence: IN)
  Receive Date: 20220518
  Receipt Date: 20230515
  Transmission Date: 20230722
  Serious: Yes (Hospitalization, Other)
  Sender: FDA-Public Use
  Company Number: IN-PFIZER INC-2021162135

PATIENT
  Age: 60 Year
  Sex: Female

DRUGS (11)
  1. AROMASIN [Suspect]
     Active Substance: EXEMESTANE
     Indication: Breast cancer metastatic
     Dosage: 25 MG, 1X/DAY
     Route: 048
     Dates: start: 20181221
  2. AROMASIN [Suspect]
     Active Substance: EXEMESTANE
     Dosage: UNK
     Route: 048
     Dates: start: 20210804
  3. D ROZAVEL [Concomitant]
     Dosage: UNK
     Dates: start: 20220428
  4. BISOPROLOL FUMARATE [Concomitant]
     Active Substance: BISOPROLOL FUMARATE
     Dosage: UNK
     Dates: start: 20220428
  5. ANGISPAN TR [Concomitant]
     Dosage: UNK
     Dates: start: 20210804
  6. LEVOTHYROXINE [Concomitant]
     Active Substance: LEVOTHYROXINE
     Dosage: UNK
     Dates: start: 20220428
  7. AMARYL [Concomitant]
     Active Substance: GLIMEPIRIDE
     Dosage: UNK
     Dates: start: 20220428
  8. OXRA [Concomitant]
     Dosage: UNK
     Dates: start: 20221015
  9. RIFLUX [Concomitant]
     Dosage: UNK
     Dates: start: 20220428
  10. NEXPRO-RD [Concomitant]
     Dosage: UNK
     Dates: start: 20221015
  11. VIZYLAC [BACILLUS COAGULANS;DEXPANTHENOL;FOLIC ACID;NICOTINAMIDE;PYRID [Concomitant]
     Dosage: UNK
     Dates: start: 20221015

REACTIONS (26)
  - Hypersensitivity pneumonitis [Unknown]
  - COVID-19 pneumonia [Unknown]
  - Hypothyroidism [Unknown]
  - Diabetes mellitus [Unknown]
  - Cardiomyopathy [Unknown]
  - Left ventricular dysfunction [Unknown]
  - Cough [Unknown]
  - Heart rate increased [Unknown]
  - Blood pressure increased [Recovered/Resolved]
  - Gastroenteritis [Unknown]
  - Dehydration [Unknown]
  - Pyrexia [Unknown]
  - Nausea [Unknown]
  - Vomiting [Unknown]
  - Dyspnoea exertional [Unknown]
  - Myalgia [Unknown]
  - Asthenia [Unknown]
  - Percutaneous coronary intervention [Unknown]
  - Blood glucose increased [Unknown]
  - Body temperature increased [Unknown]
  - Pneumonia [Unknown]
  - Pulmonary oedema [Unknown]
  - Coronary artery stenosis [Unknown]
  - Bundle branch block left [Unknown]
  - Dry mouth [Recovered/Resolved]
  - Asthenia [Unknown]

NARRATIVE: CASE EVENT DATE: 20210523
